FAERS Safety Report 10111366 (Version 3)
Quarter: 2014Q4

REPORT INFORMATION
  Report Type: Report from Study
  Country: JP (occurrence: JP)
  Receive Date: 20140425
  Receipt Date: 20141014
  Transmission Date: 20150528
  Serious: Yes (Other)
  Sender: FDA-Public Use
  Company Number: JP-009507513-1404JPN011470

PATIENT
  Age: 57 Year
  Sex: Female
  Weight: 51 kg

DRUGS (5)
  1. URSO [Concomitant]
     Active Substance: URSODIOL
     Indication: HEPATITIS C
     Dosage: 200 MG, TID
     Route: 048
     Dates: end: 20130903
  2. REBETOL [Suspect]
     Active Substance: RIBAVIRIN
     Indication: HEPATIC CIRRHOSIS
     Dosage: 600 MG, QD
     Route: 048
     Dates: start: 20130314, end: 20130903
  3. MUCOSTA [Concomitant]
     Active Substance: REBAMIPIDE
     Indication: PROPHYLAXIS AGAINST GASTROINTESTINAL ULCER
     Dosage: 100 MG, AS NEEDED
     Route: 048
     Dates: start: 20130314, end: 20130917
  4. PEGINTRON [Suspect]
     Active Substance: PEGINTERFERON ALFA-2B
     Indication: HEPATIC CIRRHOSIS
     Dosage: 60 MICROGRAM, QW
     Route: 058
     Dates: start: 20130314, end: 20130828
  5. LOXONIN [Concomitant]
     Active Substance: LOXOPROFEN SODIUM
     Indication: PROPHYLAXIS
     Dosage: 60 MG, ADMINISTRATION FREQUENCY UNKNOWN DURING A DAY
     Route: 048
     Dates: start: 20130314, end: 20130917

REACTIONS (9)
  - Neutrophil count decreased [Recovered/Resolved]
  - Rheumatoid arthritis [Not Recovered/Not Resolved]
  - Arthralgia [Not Recovered/Not Resolved]
  - Pyrexia [Recovered/Resolved]
  - Eczema [Recovered/Resolved]
  - Diarrhoea [Recovered/Resolved]
  - Red blood cell count decreased [Recovered/Resolved]
  - Platelet count decreased [Recovered/Resolved]
  - Hypoalbuminaemia [Recovered/Resolved]

NARRATIVE: CASE EVENT DATE: 20130314
